FAERS Safety Report 10219408 (Version 5)
Quarter: 2015Q1

REPORT INFORMATION
  Report Type: Report from Study
  Country: IT (occurrence: IT)
  Receive Date: 20140605
  Receipt Date: 20150128
  Transmission Date: 20150720
  Serious: Yes (Hospitalization, Other)
  Sender: FDA-Public Use
  Company Number: PHHO2014IT007931

PATIENT
  Age: 70 Year
  Sex: Male
  Weight: 72 kg

DRUGS (19)
  1. BLINDED ENALAPRIL [Suspect]
     Active Substance: ENALAPRIL
     Indication: CARDIAC FAILURE CHRONIC
     Dosage: CODE NOT BROKEN
     Route: 048
     Dates: start: 20110701, end: 20110713
  2. ALLOPURINOL. [Concomitant]
     Active Substance: ALLOPURINOL
     Dosage: 150 MG, UNK
     Route: 065
     Dates: start: 201311
  3. BLINDED ENALAPRIL [Suspect]
     Active Substance: ENALAPRIL
     Dosage: CODE NOT BROKEN
     Route: 048
     Dates: start: 20110714, end: 20110824
  4. LANTUS [Concomitant]
     Active Substance: INSULIN GLARGINE
     Indication: DIABETES MELLITUS
     Dosage: UNK
     Route: 065
  5. BLINDED ALISKIREN [Suspect]
     Active Substance: ALISKIREN
     Indication: CARDIAC FAILURE CHRONIC
     Dosage: CODE NOT BROKEN
     Route: 048
     Dates: start: 20110701, end: 20110713
  6. BLINDED ALISKIREN [Suspect]
     Active Substance: ALISKIREN
     Dosage: CODE NOT BROKEN
     Route: 048
     Dates: start: 20110825, end: 20120318
  7. FUROSEMIDE. [Concomitant]
     Active Substance: FUROSEMIDE
     Indication: CARDIAC FAILURE CHRONIC
     Dosage: 75 MG, BID
     Route: 048
     Dates: start: 201011
  8. BLINDED ENALAPRIL [Suspect]
     Active Substance: ENALAPRIL
     Dosage: CODE NOT BROKEN
     Route: 048
     Dates: start: 20110825, end: 20120318
  9. ENOXAPARIN [Suspect]
     Active Substance: ENOXAPARIN
     Indication: TRANSITIONAL CELL CARCINOMA
     Route: 065
  10. ATORVASTATIN [Concomitant]
     Active Substance: ATORVASTATIN
     Indication: PROPHYLAXIS
     Dosage: 40 MG, UNK
     Route: 048
     Dates: start: 201011
  11. BLINDED NO TREATMENT RECEIVED [Suspect]
     Active Substance: UNSPECIFIED INGREDIENT
     Dosage: CODE NOT BROKEN
     Route: 048
     Dates: start: 20110714, end: 20110824
  12. LERCANIDIPINE [Concomitant]
     Active Substance: LERCANIDIPINE
     Indication: HYPERTENSION
     Dosage: 10 MG, UNK
     Route: 048
     Dates: start: 20131209
  13. BLINDED ALISKIREN [Suspect]
     Active Substance: ALISKIREN
     Dosage: CODE NOT BROKEN
     Route: 048
     Dates: start: 20110714, end: 20110824
  14. BLINDED NO TREATMENT RECEIVED [Suspect]
     Active Substance: UNSPECIFIED INGREDIENT
     Dosage: CODE NOT BROKEN
     Route: 048
     Dates: start: 20110825, end: 20120318
  15. BISOPROLOL [Concomitant]
     Active Substance: BISOPROLOL
     Indication: CARDIAC FAILURE CHRONIC
     Dosage: 5 MG, UNK
     Route: 048
     Dates: start: 20131114
  16. ALLOPURINOL. [Concomitant]
     Active Substance: ALLOPURINOL
     Indication: HYPERURICAEMIA
     Dosage: 150 MG, UNK
     Route: 065
     Dates: start: 20140320
  17. BLINDED NO TREATMENT RECEIVED [Suspect]
     Active Substance: UNSPECIFIED INGREDIENT
     Indication: CARDIAC FAILURE CHRONIC
     Dosage: CODE NOT BROKEN
     Route: 048
     Dates: start: 20110701, end: 20110713
  18. CARDIOASPIRIN [Concomitant]
     Active Substance: ASPIRIN
     Indication: PRODUCT USED FOR UNKNOWN INDICATION
     Dosage: 100 MG, UNK
     Route: 048
     Dates: start: 201011, end: 20140423
  19. INSULIN HUMAN [Concomitant]
     Active Substance: INSULIN HUMAN
     Indication: DIABETES MELLITUS
     Dosage: UNK
     Route: 065

REACTIONS (3)
  - Urinary retention [Recovered/Resolved]
  - Haematuria [Recovered/Resolved]
  - Transitional cell carcinoma [Recovering/Resolving]

NARRATIVE: CASE EVENT DATE: 20140424
